FAERS Safety Report 8760932 (Version 2)
Quarter: 2013Q1

REPORT INFORMATION
  Report Type: Spontaneous
  Country: BR (occurrence: BR)
  Receive Date: 20120830
  Receipt Date: 20130115
  Transmission Date: 20140127
  Serious: Yes (Life-Threatening, Hospitalization, Other)
  Sender: FDA-Public Use
  Company Number: PHHY2012BR074770

PATIENT
  Age: 58 Year
  Sex: Female
  Weight: 50 kg

DRUGS (2)
  1. ONBREZ [Suspect]
     Indication: LUNG DISORDER
     Dosage: 150 UG, QD
     Dates: end: 20120826
  2. CARVEDILOL [Concomitant]
     Indication: CARDIAC DISORDER
     Dosage: 2 DF, QD
     Route: 048
     Dates: start: 201208

REACTIONS (4)
  - Feeling abnormal [Unknown]
  - Renal disorder [Not Recovered/Not Resolved]
  - Emphysema [Recovered/Resolved]
  - Dyspnoea [Not Recovered/Not Resolved]
